FAERS Safety Report 22180497 (Version 1)
Quarter: 2023Q2

REPORT INFORMATION
  Report Type: Spontaneous
  Country: CH (occurrence: CH)
  Receive Date: 20230406
  Receipt Date: 20230406
  Transmission Date: 20230722
  Serious: Yes (Other)
  Sender: FDA-Public Use
  Company Number: CH-AMGEN-CHESP2023055479

PATIENT
  Age: 59 Year
  Sex: Female

DRUGS (5)
  1. PROLIA [Suspect]
     Active Substance: DENOSUMAB
     Indication: Osteoporosis
     Dosage: 60 MILLIGRAM, Q6MO
     Route: 058
     Dates: start: 20220201
  2. METHOTREXATE [Suspect]
     Active Substance: METHOTREXATE
     Indication: Rheumatoid arthritis
     Dosage: 25 MILLIGRAM, QWK
     Route: 058
     Dates: start: 201508, end: 201712
  3. METHOTREXATE [Suspect]
     Active Substance: METHOTREXATE
     Dosage: 25 MILLIGRAM, QWK
     Route: 058
     Dates: start: 20180119
  4. ZOLEDRONATE DISODIUM [Suspect]
     Active Substance: ZOLEDRONATE DISODIUM
     Indication: Osteoporosis
     Dosage: 5 MILLIGRAM
     Route: 042
     Dates: start: 20171001, end: 20201231
  5. ERELZI [Concomitant]
     Active Substance: ETANERCEPT-SZZS
     Indication: Rheumatoid arthritis
     Dosage: 50 MILLIGRAM, Q4WK
     Route: 058
     Dates: start: 202111

REACTIONS (1)
  - Stress fracture [Unknown]

NARRATIVE: CASE EVENT DATE: 20230215
